FAERS Safety Report 22794413 (Version 2)
Quarter: 2023Q4

REPORT INFORMATION
  Report Type: Report from Study
  Country: US (occurrence: US)
  Receive Date: 20230807
  Receipt Date: 20231110
  Transmission Date: 20240110
  Serious: Yes (Death, Hospitalization)
  Sender: FDA-Public Use
  Company Number: US-ABBVIE-5183502

PATIENT
  Sex: Male
  Weight: 98 kg

DRUGS (1)
  1. VENCLEXTA [Suspect]
     Active Substance: VENETOCLAX
     Indication: Plasma cell myeloma
     Dosage: TIME INTERVAL: 0.125 DAYS
     Route: 048
     Dates: start: 20230503, end: 20230626

REACTIONS (21)
  - Sepsis [Fatal]
  - Atrial fibrillation [Fatal]
  - Off label use [Unknown]
  - Chronic obstructive pulmonary disease [Fatal]
  - Plasma cell leukaemia [Fatal]
  - Brain injury [Fatal]
  - Obstructive sleep apnoea syndrome [Fatal]
  - Hypoxic-ischaemic encephalopathy [Fatal]
  - Hypercapnia [Fatal]
  - Bundle branch block right [Fatal]
  - Coronary artery disease [Fatal]
  - Type 2 diabetes mellitus [Fatal]
  - Congenital cystic kidney disease [Fatal]
  - Chronic kidney disease [Fatal]
  - Pneumonia aspiration [Fatal]
  - Pneumonia [Fatal]
  - Cardiac arrest [Fatal]
  - Acute respiratory failure [Fatal]
  - Illness [Unknown]
  - Infectious pleural effusion [Fatal]
  - Cardio-respiratory arrest [Fatal]

NARRATIVE: CASE EVENT DATE: 20230101
